FAERS Safety Report 9035359 (Version 1)
Quarter: 2013Q1

REPORT INFORMATION
  Report Type: Report from Study
  Country: US (occurrence: US)
  Receive Date: 20130129
  Receipt Date: 20130129
  Transmission Date: 20140127
  Serious: No
  Sender: FDA-Public Use
  Company Number: US-ABBOTT-12P-163-0894843-00

PATIENT
  Age: 33 Year
  Sex: Female
  Weight: 68.1 kg

DRUGS (4)
  1. HUMIRA 40 MG/0.8 ML PEN [Suspect]
     Indication: CROHN^S DISEASE
     Dosage: LOADING DOSE
     Dates: start: 20120105, end: 20120105
  2. APRISO [Concomitant]
     Indication: CROHN^S DISEASE
  3. ENTOCORT [Concomitant]
     Indication: CROHN^S DISEASE
  4. TRAMADOL [Concomitant]
     Indication: PAIN

REACTIONS (1)
  - Neck pain [Not Recovered/Not Resolved]
